FAERS Safety Report 5775412-4 (Version None)
Quarter: 2008Q2

REPORT INFORMATION
  Report Type: 
  Country: None (occurrence: None)
  Receive Date: 20080613
  Receipt Date: 20080605
  Transmission Date: 20081010
  Serious: Yes (Hospitalization, Other)
  Sender: FDA-Public Use
  Company Number: 163-21880-08060364

PATIENT
  Age: 59 Year
  Sex: Male
  Weight: 107 kg

DRUGS (3)
  1. REVLIMID [Suspect]
     Indication: MULTIPLE MYELOMA
     Dosage: 25 MG, DAYS 1-21, ORAL
     Route: 048
     Dates: start: 20080512, end: 20080101
  2. DEXAMETHASONE TAB [Suspect]
     Indication: MULTIPLE MYELOMA
  3. DOXIL [Suspect]
     Indication: DRUG USE FOR UNKNOWN INDICATION

REACTIONS (5)
  - ASTHMA [None]
  - COUGH [None]
  - HYPOKALAEMIA [None]
  - MALAISE [None]
  - PHARYNGOLARYNGEAL PAIN [None]
